FAERS Safety Report 7126635-3 (Version None)
Quarter: 2010Q4

REPORT INFORMATION
  Report Type: 
  Country: None (occurrence: None)
  Receive Date: 20101129
  Receipt Date: 20101123
  Transmission Date: 20110411
  Serious: Yes (Death)
  Sender: FDA-Public Use
  Company Number: CA-PFIZER INC-2010139498

PATIENT
  Age: 67 Year
  Sex: Male

DRUGS (5)
  1. REVATIO [Suspect]
  2. COUMADIN [Concomitant]
     Indication: ATRIAL FIBRILLATION
     Dosage: UNK MG, UNK
  3. LASIX [Concomitant]
     Indication: OEDEMA
     Dosage: 20 MG, 1X/DAY
     Route: 048
  4. AMITRIPTYLINE [Concomitant]
     Indication: PAIN
     Dosage: 100 MG, 1X/DAY AT BEDTIME
     Route: 048
  5. CITALOPRAM [Concomitant]
     Indication: DEPRESSION
     Dosage: 20 MG, 1X/DAY
     Route: 048

REACTIONS (1)
  - LUNG CANCER METASTATIC [None]
